FAERS Safety Report 14905234 (Version 1)
Quarter: 2018Q2

REPORT INFORMATION
  Report Type: Spontaneous
  Country: US (occurrence: US)
  Receive Date: 20180517
  Receipt Date: 20180517
  Transmission Date: 20180711
  Serious: No
  Sender: FDA-Public Use
  Company Number: US-SA-2017SA236029

PATIENT
  Age: 69 Year
  Sex: Female

DRUGS (2)
  1. LANTUS SOLOSTAR [Suspect]
     Active Substance: INSULIN GLARGINE
     Indication: DIABETES MELLITUS
     Dosage: DOSE: 54 U AM + 45 U PM
     Route: 051
     Dates: start: 2011
  2. SOLOSTAR [Suspect]
     Active Substance: DEVICE
     Indication: DIABETES MELLITUS
     Dates: start: 2011

REACTIONS (5)
  - Anaemia [Unknown]
  - White blood cell count increased [Unknown]
  - Red blood cell count decreased [Unknown]
  - Blood disorder [Unknown]
  - Product use issue [Unknown]

NARRATIVE: CASE EVENT DATE: 2011
